FAERS Safety Report 25953812 (Version 1)
Quarter: 2025Q4

REPORT INFORMATION
  Report Type: Spontaneous
  Country: EU (occurrence: EU)
  Receive Date: 20251023
  Receipt Date: 20251023
  Transmission Date: 20260118
  Serious: Yes (Life-Threatening)
  Sender: NOVARTIS
  Company Number: None

PATIENT
  Age: 28 Year
  Sex: Male

DRUGS (1)
  1. CYCLOSPORINE [Suspect]
     Active Substance: CYCLOSPORINE
     Indication: Complications of transplant surgery
     Dosage: UNK
     Route: 065
     Dates: start: 199302

REACTIONS (1)
  - Leukaemia granulocytic [Not Recovered/Not Resolved]

NARRATIVE: CASE EVENT DATE: 19960401
